FAERS Safety Report 9781337 (Version 2)
Quarter: 2014Q2

REPORT INFORMATION
  Report Type: Spontaneous
  Country: US (occurrence: US)
  Receive Date: 20131224
  Receipt Date: 20140417
  Transmission Date: 20141212
  Serious: Yes (Hospitalization)
  Sender: FDA-Public Use
  Company Number: US-TMC-CABO-13003798

PATIENT
  Age: 65 Year
  Sex: Male

DRUGS (4)
  1. COMETRIQ [Suspect]
     Indication: THYROID CANCER
     Dosage: 80 MG, TID WEEKLY (M,W,F)
     Route: 048
     Dates: start: 20130313, end: 20140303
  2. COMETRIQ [Suspect]
     Dosage: 100 MG, TID WEEKLY
     Route: 048
     Dates: start: 20140304
  3. LEVOTHYROXINE [Concomitant]
  4. POTASSIUM [Concomitant]

REACTIONS (1)
  - Ulcer [Unknown]
